FAERS Safety Report 7941139-3 (Version None)
Quarter: 2011Q4

REPORT INFORMATION
  Report Type: 
  Country: None (occurrence: None)
  Receive Date: 20111128
  Receipt Date: 20111116
  Transmission Date: 20120403
  Serious: Yes (Hospitalization)
  Sender: FDA-Public Use
  Company Number: FR-JNJFOC-20111109092

PATIENT
  Sex: Female

DRUGS (2)
  1. JOSACINE [Suspect]
     Indication: NASOPHARYNGITIS
     Route: 048
     Dates: start: 20111010, end: 20111011
  2. CONCERTA [Suspect]
     Indication: ABNORMAL BEHAVIOUR
     Route: 048
     Dates: start: 20110301

REACTIONS (7)
  - MALAISE [None]
  - HEADACHE [None]
  - URTICARIA [None]
  - VISUAL IMPAIRMENT [None]
  - PINEAL GLAND CYST [None]
  - LOSS OF CONSCIOUSNESS [None]
  - URINARY INCONTINENCE [None]
